FAERS Safety Report 12154049 (Version 1)
Quarter: 2016Q1

REPORT INFORMATION
  Report Type: Spontaneous
  Country: ES (occurrence: ES)
  Receive Date: 20160307
  Receipt Date: 20160307
  Transmission Date: 20160526
  Serious: Yes (Other)
  Sender: FDA-Public Use
  Company Number: ES-APOTEX-2016AP006889

PATIENT
  Age: 56 Year
  Sex: Female

DRUGS (3)
  1. ACETILSALICILICO APOTEX COMPRIMIDOS GASTRORRESISTENTES EFG [Suspect]
     Active Substance: ASPIRIN
     Indication: ANTIPLATELET THERAPY
     Dosage: 100 MG/DAY
     Route: 065
  2. CLOPIDOGREL [Suspect]
     Active Substance: CLOPIDOGREL BISULFATE
     Indication: ANTIPLATELET THERAPY
     Dosage: 75 MG/DAY
     Route: 065
  3. ABCIXIMAB [Suspect]
     Active Substance: ABCIXIMAB
     Indication: PRODUCT USED FOR UNKNOWN INDICATION
     Route: 050

REACTIONS (3)
  - Contraindicated drug administered [Unknown]
  - Drug ineffective [Unknown]
  - Vascular stent thrombosis [Recovering/Resolving]
